FAERS Safety Report 24905853 (Version 2)
Quarter: 2025Q1

REPORT INFORMATION
  Report Type: Report from Study
  Country: CO (occurrence: CO)
  Receive Date: 20250130
  Receipt Date: 20250204
  Transmission Date: 20250409
  Serious: Yes (Life-Threatening)
  Sender: NOVARTIS
  Company Number: CO-002147023-NVSC2024CO050975

PATIENT
  Sex: Female
  Weight: 70 kg

DRUGS (6)
  1. ELTROMBOPAG OLAMINE [Suspect]
     Active Substance: ELTROMBOPAG OLAMINE
     Indication: Immune thrombocytopenia
     Dosage: 50 MG, QD
     Route: 048
     Dates: start: 20240226
  2. ELTROMBOPAG OLAMINE [Suspect]
     Active Substance: ELTROMBOPAG OLAMINE
     Indication: Idiopathic urticaria
     Dosage: 75 MG, QD
     Route: 048
  3. ELTROMBOPAG OLAMINE [Suspect]
     Active Substance: ELTROMBOPAG OLAMINE
     Route: 065
  4. ELTROMBOPAG OLAMINE [Suspect]
     Active Substance: ELTROMBOPAG OLAMINE
     Dosage: 50 MG (2 OF 25 MG), QD
     Route: 058
  5. PREDNISOLONE [Concomitant]
     Active Substance: PREDNISOLONE
     Indication: Weight abnormal
     Route: 065
  6. ACITRETIN [Concomitant]
     Active Substance: ACITRETIN
     Indication: Weight abnormal
     Route: 065

REACTIONS (13)
  - Platelet count decreased [Not Recovered/Not Resolved]
  - Platelet count increased [Unknown]
  - Swelling face [Unknown]
  - Abdominal distension [Unknown]
  - Boredom [Unknown]
  - Contusion [Unknown]
  - Blood disorder [Unknown]
  - Malaise [Unknown]
  - Wrong technique in product usage process [Unknown]
  - Incorrect dose administered [Unknown]
  - Fatigue [Recovered/Resolved]
  - Fear [Unknown]
  - Product use in unapproved indication [Unknown]
